FAERS Safety Report 11878089 (Version 1)
Quarter: 2015Q4

REPORT INFORMATION
  Report Type: Spontaneous
  Country: US (occurrence: US)
  Receive Date: 20151230
  Receipt Date: 20151230
  Transmission Date: 20160305
  Serious: Yes (Hospitalization)
  Sender: FDA-Public Use
  Company Number: US-DRREDDYS-USA/USA/15/0054992

PATIENT
  Age: 30 Year
  Sex: Male

DRUGS (2)
  1. NALBUPHINE [Concomitant]
     Active Substance: NALBUPHINE
     Indication: COSTOCHONDRITIS
     Route: 065
  2. IBUPROFEN. [Suspect]
     Active Substance: IBUPROFEN
     Indication: COSTOCHONDRITIS
     Route: 065

REACTIONS (1)
  - Drug eruption [Recovered/Resolved]
